FAERS Safety Report 12919514 (Version 4)
Quarter: 2017Q4

REPORT INFORMATION
  Report Type: Spontaneous
  Country: JP (occurrence: JP)
  Receive Date: 20161107
  Receipt Date: 20171101
  Transmission Date: 20180320
  Serious: Yes (Hospitalization, Other)
  Sender: FDA-Public Use
  Company Number: JP-GLAXOSMITHKLINE-JP2016JPN077277

PATIENT
  Age: 86 Year
  Sex: Female
  Weight: 28 kg

DRUGS (10)
  1. HIRUDOID LOTION [Concomitant]
     Dosage: UNK
  2. E KEPPRA TABLETS [Concomitant]
     Dosage: 250 MG, BID
  3. LULICON [Concomitant]
     Active Substance: LULICONAZOLE
     Dosage: UNK, QD
  4. FLORINEF ACETATE [Concomitant]
     Active Substance: FLUDROCORTISONE ACETATE
     Dosage: 0.025 MG, BID
  5. GLUCONSAN K [Concomitant]
     Active Substance: POTASSIUM GLUCONATE
     Dosage: 1.5 G, TID
  6. LAMICTAL [Suspect]
     Active Substance: LAMOTRIGINE
     Indication: EPILEPSY
     Dosage: 12.5 MG, QD
     Route: 048
     Dates: start: 20160421
  7. GLUCONSAN K [Concomitant]
     Active Substance: POTASSIUM GLUCONATE
     Dosage: 1 G, TID
  8. LAMICTAL [Suspect]
     Active Substance: LAMOTRIGINE
     Dosage: 12.5 MG, 1D
     Route: 050
     Dates: start: 20160616, end: 20160701
  9. NEW LECICARBON [Concomitant]
     Active Substance: SODIUM BICARBONATE\SODIUM PHOSPHATE, MONOBASIC
     Dosage: 1 DF, PRN
  10. WHITE PETROLATUM [Concomitant]
     Active Substance: PETROLATUM
     Dosage: UNK

REACTIONS (13)
  - Rash generalised [Recovering/Resolving]
  - Erythema of eyelid [Unknown]
  - Stevens-Johnson syndrome [Recovering/Resolving]
  - Erythema [Unknown]
  - Oral mucosa erosion [Unknown]
  - Ocular hyperaemia [Unknown]
  - Blister [Unknown]
  - Oculomucocutaneous syndrome [Recovering/Resolving]
  - Pruritus [Unknown]
  - Pyrexia [Unknown]
  - Hyponatraemia [Recovering/Resolving]
  - Lip erosion [Unknown]
  - Skin erosion [Unknown]

NARRATIVE: CASE EVENT DATE: 20160528
